FAERS Safety Report 7283452-1 (Version None)
Quarter: 2011Q1

REPORT INFORMATION
  Report Type: 
  Country: None (occurrence: None)
  Receive Date: 20110204
  Receipt Date: 20110204
  Transmission Date: 20110831
  Serious: Yes (Life-Threatening, Hospitalization, Disabling)
  Sender: FDA-Public Use
  Company Number: None

PATIENT
  Age: 57 Year
  Sex: Female
  Weight: 95.2554 kg

DRUGS (2)
  1. AVANDIA [Suspect]
     Indication: CARDIAC FAILURE CONGESTIVE
     Dosage: 3 TIMES A DAY
     Dates: start: 20020101
  2. AVANDIA [Suspect]
     Indication: DIABETES MELLITUS
     Dosage: 3 TIMES A DAY
     Dates: start: 20020101

REACTIONS (2)
  - CARDIAC FAILURE CONGESTIVE [None]
  - MYOCARDIAL INFARCTION [None]
